FAERS Safety Report 14587059 (Version 1)
Quarter: 2018Q1

REPORT INFORMATION
  Report Type: Spontaneous
  Country: US (occurrence: US)
  Receive Date: 20180228
  Receipt Date: 20180228
  Transmission Date: 20180509
  Serious: Yes (Death)
  Sender: FDA-Public Use
  Company Number: None

PATIENT
  Age: 75 Year
  Sex: Female

DRUGS (4)
  1. LEVOTHYROXIN [Concomitant]
     Active Substance: LEVOTHYROXINE
  2. AMIODARONE [Concomitant]
     Active Substance: AMIODARONE
  3. IBRANCE [Suspect]
     Active Substance: PALBOCICLIB
  4. WARFARIN [Concomitant]
     Active Substance: WARFARIN

REACTIONS (2)
  - Neoplasm malignant [None]
  - Bone marrow disorder [None]

NARRATIVE: CASE EVENT DATE: 20180226
